FAERS Safety Report 8181557-4 (Version None)
Quarter: 2012Q1

REPORT INFORMATION
  Report Type: 
  Country: None (occurrence: None)
  Receive Date: 20120302
  Receipt Date: 20120221
  Transmission Date: 20120608
  Serious: Yes (Other)
  Sender: FDA-Public Use
  Company Number: PHHY2012US015025

PATIENT
  Age: 53 Year
  Sex: Female

DRUGS (3)
  1. PREDNISONE TAB [Suspect]
     Indication: RHEUMATOID ARTHRITIS
  2. METHOTREXATE [Suspect]
     Indication: RHEUMATOID ARTHRITIS
  3. PLAQUENIL [Suspect]
     Indication: RHEUMATOID ARTHRITIS

REACTIONS (3)
  - ALOPECIA [None]
  - GASTROOESOPHAGEAL REFLUX DISEASE [None]
  - PHOTOSENSITIVITY REACTION [None]
